FAERS Safety Report 4692533-8 (Version None)
Quarter: 2005Q2

REPORT INFORMATION
  Report Type: 
  Country: None (occurrence: None)
  Receive Date: 20050617
  Receipt Date: 20050304
  Transmission Date: 20051028
  Serious: Yes (Hospitalization, Disabling)
  Sender: FDA-Public Use
  Company Number: US-MERCK-0503USA00965

PATIENT
  Age: 60 Year
  Sex: Female
  Weight: 86 kg

DRUGS (5)
  1. VIOXX [Suspect]
     Indication: OSTEOARTHRITIS
     Route: 048
     Dates: start: 20010228, end: 20021210
  2. VIOXX [Suspect]
     Indication: FIBROMYALGIA
     Route: 048
     Dates: start: 20010228, end: 20021210
  3. ESTRACE [Concomitant]
     Route: 065
     Dates: start: 19990101, end: 20021004
  4. NEXIUM [Concomitant]
     Route: 065
  5. CALCIUM (UNSPECIFIED) [Concomitant]
     Route: 065

REACTIONS (28)
  - ANTINUCLEAR ANTIBODY POSITIVE [None]
  - ARTHRALGIA [None]
  - ASTHENIA [None]
  - CEREBROVASCULAR ACCIDENT [None]
  - DIFFICULTY IN WALKING [None]
  - DIZZINESS [None]
  - DYSPNOEA [None]
  - DYSSTASIA [None]
  - GASTROOESOPHAGEAL REFLUX DISEASE [None]
  - HEADACHE [None]
  - HYPERTENSION [None]
  - INFECTION [None]
  - ISCHAEMIC STROKE [None]
  - LOWER LIMB FRACTURE [None]
  - MUSCULOSKELETAL STIFFNESS [None]
  - NAUSEA [None]
  - NEUROPATHY [None]
  - OEDEMA PERIPHERAL [None]
  - PALPITATIONS [None]
  - POSTNASAL DRIP [None]
  - PRODUCTIVE COUGH [None]
  - PULMONARY EMBOLISM [None]
  - RASH ERYTHEMATOUS [None]
  - RHEUMATOID FACTOR [None]
  - SNORING [None]
  - SOMNOLENCE [None]
  - SPUTUM DISCOLOURED [None]
  - ULCER [None]
